FAERS Safety Report 23979990 (Version 1)
Quarter: 2024Q2

REPORT INFORMATION
  Report Type: Spontaneous
  Country: JP (occurrence: JP)
  Receive Date: 20240617
  Receipt Date: 20240617
  Transmission Date: 20240716
  Serious: Yes (Hospitalization, Other)
  Sender: FDA-Public Use
  Company Number: JP-TWI PHARMACEUTICAL, INC-2024SCTW000109

PATIENT

DRUGS (1)
  1. GUANFACINE HYDROCHLORIDE [Suspect]
     Active Substance: GUANFACINE HYDROCHLORIDE
     Indication: Attention deficit hyperactivity disorder
     Dosage: UNK
     Route: 065

REACTIONS (6)
  - Electrocardiogram QT prolonged [Unknown]
  - Bradycardia [Unknown]
  - Syncope [Unknown]
  - Somnolence [Unknown]
  - Overdose [Unknown]
  - Electrocardiogram T wave abnormal [Unknown]
